FAERS Safety Report 18794933 (Version 4)
Quarter: 2021Q1

REPORT INFORMATION
  Report Type: Report from Study
  Country: ZA (occurrence: ZA)
  Receive Date: 20210127
  Receipt Date: 20210312
  Transmission Date: 20210419
  Serious: Yes (Death)
  Sender: FDA-Public Use
  Company Number: ZA-KARYOPHARM-2020KPT001457

PATIENT
  Age: 68 Year
  Sex: Male
  Weight: 128 kg

DRUGS (2)
  1. NPLATE [Concomitant]
     Active Substance: ROMIPLOSTIM
     Indication: THROMBOCYTOPENIA
     Dosage: 500 UG, QD
  2. SELINEXOR [Suspect]
     Active Substance: SELINEXOR
     Indication: DIFFUSE LARGE B-CELL LYMPHOMA
     Dosage: 80 MG, WEEKLY, ORAL
     Route: 048
     Dates: start: 20201021, end: 20201205

REACTIONS (4)
  - Nausea [Recovered/Resolved]
  - Diffuse large B-cell lymphoma refractory [Fatal]
  - Decreased appetite [Not Recovered/Not Resolved]
  - Fatigue [Not Recovered/Not Resolved]

NARRATIVE: CASE EVENT DATE: 20201021
